FAERS Safety Report 7750621-3 (Version None)
Quarter: 2011Q3

REPORT INFORMATION
  Report Type: 
  Country: None (occurrence: None)
  Receive Date: 20110914
  Receipt Date: 20110907
  Transmission Date: 20111222
  Serious: Yes (Hospitalization)
  Sender: FDA-Public Use
  Company Number: US-GLAXOSMITHKLINE-A0888754A

PATIENT
  Age: 44 Year
  Sex: Male
  Weight: 86.4 kg

DRUGS (8)
  1. PROTONIX [Concomitant]
  2. VIAGRA [Concomitant]
  3. NEURONTIN [Concomitant]
  4. AVANDIA [Suspect]
     Indication: DIABETES MELLITUS
     Dosage: 4MG PER DAY
     Route: 048
     Dates: end: 20050101
  5. INSULIN [Concomitant]
  6. LIPITOR [Concomitant]
  7. SKELAXIN [Concomitant]
  8. TOPROL-XL [Concomitant]

REACTIONS (5)
  - CORONARY ARTERY DISEASE [None]
  - CARDIAC FAILURE CONGESTIVE [None]
  - TRANSIENT ISCHAEMIC ATTACK [None]
  - MYOCARDIAL INFARCTION [None]
  - CEREBROVASCULAR ACCIDENT [None]
